FAERS Safety Report 7073139-2 (Version None)
Quarter: 2010Q4

REPORT INFORMATION
  Report Type: 
  Country: None (occurrence: None)
  Receive Date: 20101029
  Receipt Date: 20100430
  Transmission Date: 20110411
  Serious: No
  Sender: FDA-Public Use
  Company Number: A0857483A

PATIENT
  Age: 68 Year
  Sex: Female

DRUGS (6)
  1. ADVAIR DISKUS 100/50 [Suspect]
     Indication: CHRONIC OBSTRUCTIVE PULMONARY DISEASE
     Dosage: 1PUFF TWICE PER DAY
     Route: 055
     Dates: start: 20090901, end: 20100423
  2. LAMICTAL [Suspect]
  3. LEVOTHYROXINE [Concomitant]
  4. TRAZODONE [Concomitant]
  5. LEXAPRO [Concomitant]
  6. LITHIUM [Concomitant]

REACTIONS (4)
  - CHEST PAIN [None]
  - DYSPHONIA [None]
  - DYSPNOEA [None]
  - THROAT IRRITATION [None]
